FAERS Safety Report 5358928-4 (Version None)
Quarter: 2007Q2

REPORT INFORMATION
  Report Type: 
  Country: None (occurrence: None)
  Receive Date: 20070615
  Receipt Date: 20070608
  Transmission Date: 20071010
  Serious: Yes (Hospitalization)
  Sender: FDA-Public Use
  Company Number: B0474952A

PATIENT
  Age: 78 Year
  Sex: Female

DRUGS (3)
  1. SEREVENT [Suspect]
     Indication: ASTHMA
     Dosage: 25MCG TWICE PER DAY
     Route: 055
     Dates: start: 20070425, end: 20070507
  2. VENTOLIN [Concomitant]
  3. LACIPIL [Concomitant]

REACTIONS (6)
  - APNOEA [None]
  - BRONCHOSPASM [None]
  - DYSPNOEA [None]
  - RESPIRATORY FAILURE [None]
  - SOMNOLENCE [None]
  - STATUS ASTHMATICUS [None]
